FAERS Safety Report 8831656 (Version 1)
Quarter: 2012Q4

REPORT INFORMATION
  Report Type: 
  Country: US (occurrence: US)
  Receive Date: 20121009
  Receipt Date: 20121009
  Transmission Date: 20130627
  Serious: No
  Sender: FDA-Public Use
  Company Number: US-MYLANLABS-2012S1018560

PATIENT

DRUGS (1)
  1. ETOMIDATE [Suspect]

REACTIONS (1)
  - Drug ineffective [Not Recovered/Not Resolved]
